FAERS Safety Report 18055199 (Version 1)
Quarter: 2020Q3

REPORT INFORMATION
  Report Type: Spontaneous
  Country: DE (occurrence: DE)
  Receive Date: 20200722
  Receipt Date: 20200722
  Transmission Date: 20201103
  Serious: Yes (Hospitalization)
  Sender: FDA-Public Use
  Company Number: DE-MYLANLABS-2020M1066344

PATIENT
  Age: 42 Year
  Sex: Male

DRUGS (1)
  1. FENTANYL. [Suspect]
     Active Substance: FENTANYL
     Indication: PRODUCT USED FOR UNKNOWN INDICATION
     Route: 065

REACTIONS (8)
  - Compartment syndrome [Recovered/Resolved]
  - Fall [Recovered/Resolved]
  - Haematoma muscle [Recovered/Resolved]
  - Dizziness [Recovered/Resolved]
  - Rhabdomyolysis [Recovered/Resolved]
  - Injury [Recovered/Resolved]
  - Drug abuse [Recovered/Resolved]
  - Acute kidney injury [Recovered/Resolved]
